FAERS Safety Report 21486160 (Version 1)
Quarter: 2022Q4

REPORT INFORMATION
  Report Type: Spontaneous
  Country: CA (occurrence: CA)
  Receive Date: 20221020
  Receipt Date: 20221020
  Transmission Date: 20230112
  Serious: Yes (Other)
  Sender: FDA-Public Use
  Company Number: CA-PFIZER INC-PV202200085122

PATIENT
  Age: 36 Year
  Sex: Male

DRUGS (3)
  1. TOFACITINIB [Suspect]
     Active Substance: TOFACITINIB
     Indication: Colitis ulcerative
     Dosage: UNK
  2. PREDNISONE [Concomitant]
     Active Substance: PREDNISONE
     Dosage: UNK
     Route: 048
  3. FLEXI [ACECLOFENAC] [Concomitant]
     Dosage: UNK
     Dates: start: 20221017

REACTIONS (8)
  - Cerebral infarction [Unknown]
  - Cerebrovascular accident [Unknown]
  - Cerebellar stroke [Unknown]
  - Headache [Unknown]
  - Visual impairment [Unknown]
  - Inflammatory marker increased [Unknown]
  - Colitis [Unknown]
  - Tachycardia [Unknown]
